FAERS Safety Report 13703613 (Version 1)
Quarter: 2017Q2

REPORT INFORMATION
  Report Type: Spontaneous
  Country: US (occurrence: US)
  Receive Date: 20170629
  Receipt Date: 20170629
  Transmission Date: 20170830
  Serious: No
  Sender: FDA-Public Use
  Company Number: US-AVEDRO-AVE-2017-0102-AE

PATIENT
  Age: 35 Year
  Sex: Male

DRUGS (5)
  1. PHOTREXA VISCOUS [Suspect]
     Active Substance: RIBOFLAVIN 5^-PHOSPHATE SODIUM
     Indication: PRODUCT USED FOR UNKNOWN INDICATION
     Dosage: 4 DROPS AFTER EPITHELIAL DEBRIDEMENT
     Route: 047
     Dates: start: 20170222
  2. PHOTREXA VISCOUS [Suspect]
     Active Substance: RIBOFLAVIN 5^-PHOSPHATE SODIUM
     Dosage: 1 DROP EVERY 2 MINUTES DURING IRRADIATION PERIOD
     Route: 047
     Dates: start: 20170222
  3. KXL SYSTEM [Suspect]
     Active Substance: DEVICE
     Indication: PRODUCT USED FOR UNKNOWN INDICATION
     Route: 047
     Dates: start: 20170222
  4. PHOTREXA VISCOUS [Suspect]
     Active Substance: RIBOFLAVIN 5^-PHOSPHATE SODIUM
     Dosage: 1 DROP EVERY 2 MINUTES FOR FIRST 20 MINUTES OF REPEAT SOAK
     Route: 047
     Dates: start: 20170222
  5. PHOTREXA VISCOUS [Suspect]
     Active Substance: RIBOFLAVIN 5^-PHOSPHATE SODIUM
     Dosage: 1 DROP EVERY 2 MINUTES FOR 30 MINUTES DURING INITIAL SOAK
     Route: 047
     Dates: start: 20170222

REACTIONS (4)
  - Incorrect drug administration duration [Unknown]
  - No adverse event [Unknown]
  - Therapy cessation [Unknown]
  - Inappropriate schedule of drug administration [Unknown]

NARRATIVE: CASE EVENT DATE: 20170222
